FAERS Safety Report 5467757-2 (Version None)
Quarter: 2007Q3

REPORT INFORMATION
  Report Type: 
  Country: None (occurrence: None)
  Receive Date: 20070814
  Receipt Date: 20070622
  Transmission Date: 20080115
  Serious: No
  Sender: FDA-Public Use
  Company Number: 200714645US

PATIENT
  Age: 54 Year
  Sex: Male

DRUGS (5)
  1. APIDRA [Suspect]
     Indication: TYPE 2 DIABETES MELLITUS
     Dosage: 5-10 U AC
     Dates: start: 20060801
  2. OPTICLIK [Suspect]
     Indication: TYPE 2 DIABETES MELLITUS
     Dates: start: 20060801
  3. METOPROLOL SUCCINATE                     (TOPROL) [Concomitant]
  4. AMLODIPINE                     (NORVASC               /00972401/) [Concomitant]
  5. OMEPRAZOLE               (PRILOSEC /00661201/) [Concomitant]

REACTIONS (3)
  - ABDOMINAL PAIN UPPER [None]
  - DIARRHOEA [None]
  - FLATULENCE [None]
